FAERS Safety Report 21730378 (Version 1)
Quarter: 2022Q4

REPORT INFORMATION
  Report Type: Report from Study
  Country: US (occurrence: US)
  Receive Date: 20221214
  Receipt Date: 20221214
  Transmission Date: 20230113
  Serious: No
  Sender: FDA-Public Use
  Company Number: US-ABBVIE-22K-163-4370159-00

PATIENT
  Sex: Female

DRUGS (3)
  1. HUMIRA [Suspect]
     Active Substance: ADALIMUMAB
     Indication: Crohn^s disease
     Dosage: TIME INTERVAL: TOTAL: DAY 01, FORM STRENGTH: 80 MG
     Route: 058
     Dates: start: 20210918, end: 20210918
  2. HUMIRA [Suspect]
     Active Substance: ADALIMUMAB
     Dosage: DAY 15, FORM STRENGTH: 80 MG
     Route: 058
     Dates: start: 20211002, end: 20211002
  3. LINZESS [Concomitant]
     Active Substance: LINACLOTIDE
     Indication: Constipation
     Dosage: 1-2 TIMES A WEEK

REACTIONS (18)
  - Gastrooesophageal reflux disease [Unknown]
  - Rheumatoid arthritis [Unknown]
  - Colitis ulcerative [Unknown]
  - Asthenia [Unknown]
  - Crohn^s disease [Unknown]
  - Fear [Recovered/Resolved]
  - Nausea [Not Recovered/Not Resolved]
  - Gastrointestinal sounds abnormal [Not Recovered/Not Resolved]
  - Loss of personal independence in daily activities [Unknown]
  - Insomnia [Not Recovered/Not Resolved]
  - Frequent bowel movements [Not Recovered/Not Resolved]
  - Anxiety [Recovered/Resolved]
  - Depressed mood [Unknown]
  - Abdominal distension [Not Recovered/Not Resolved]
  - Constipation [Unknown]
  - Flatulence [Not Recovered/Not Resolved]
  - Stress [Unknown]
  - Panic attack [Unknown]

NARRATIVE: CASE EVENT DATE: 20220101
